FAERS Safety Report 7820514-1 (Version None)
Quarter: 2011Q4

REPORT INFORMATION
  Report Type: 
  Country: None (occurrence: None)
  Receive Date: 20111018
  Receipt Date: 20111013
  Transmission Date: 20120403
  Serious: Yes (Death)
  Sender: FDA-Public Use
  Company Number: CA-ABBOTT-11P-028-0836710-00

PATIENT
  Age: 8 Month
  Sex: Female

DRUGS (17)
  1. NORVIR [Suspect]
     Indication: HIV INFECTION
  2. ETHAMBUTOL HYDROCHLORIDE [Suspect]
     Indication: TUBERCULOSIS
  3. PYRAZINAMIDE [Suspect]
     Indication: TUBERCULOSIS
  4. NORVIR [Suspect]
  5. ISONIAZID [Suspect]
     Indication: TUBERCULOSIS
  6. LAMIVUDINE [Suspect]
  7. CIPROFLOXACIN [Suspect]
     Indication: TUBERCULOSIS
  8. COTRIM [Suspect]
     Indication: TUBERCULOSIS
  9. ZIDOVUDINE [Suspect]
     Indication: HIV INFECTION
  10. ZIDOVUDINE [Suspect]
  11. KALETRA [Suspect]
  12. HEPATITIS B VACCINE [Suspect]
     Indication: PRODUCT USED FOR UNKNOWN INDICATION
     Dosage: RECEIVED AT 6, 10 AND 14 WEEKS OF LIFE
  13. LAMIVUDINE [Suspect]
     Indication: HIV INFECTION
  14. RIFAMPIN [Suspect]
     Indication: TUBERCULOSIS
  15. TICE BCG [Suspect]
     Indication: PRODUCT USED FOR UNKNOWN INDICATION
     Dosage: LIQUID INTRADERMAL
  16. AMIKACIN [Suspect]
     Indication: TUBERCULOSIS
     Dosage: USP
     Route: 030
  17. KALETRA [Suspect]
     Indication: HIV INFECTION

REACTIONS (20)
  - IMMUNE RECONSTITUTION SYNDROME [None]
  - HEPATITIS B [None]
  - LIVER FUNCTION TEST ABNORMAL [None]
  - ACUTE HEPATIC FAILURE [None]
  - CONVULSION [None]
  - TOXICITY TO VARIOUS AGENTS [None]
  - HEPATIC ENCEPHALOPATHY [None]
  - CONDITION AGGRAVATED [None]
  - VACCINATION FAILURE [None]
  - MENTAL STATUS CHANGES [None]
  - BOVINE TUBERCULOSIS [None]
  - ALANINE AMINOTRANSFERASE INCREASED [None]
  - HAEMORRHAGE [None]
  - HEPATIC CIRRHOSIS [None]
  - HEPATIC FAILURE [None]
  - LYMPHADENITIS [None]
  - BLOOD BILIRUBIN INCREASED [None]
  - COAGULOPATHY [None]
  - BLOOD LACTATE DEHYDROGENASE INCREASED [None]
  - BRAIN OEDEMA [None]
